FAERS Safety Report 9300674 (Version 1)
Quarter: 2013Q2

REPORT INFORMATION
  Report Type: Spontaneous
  Country: US (occurrence: None)
  Receive Date: 20130520
  Receipt Date: 20130520
  Transmission Date: 20140414
  Serious: Yes (Other)
  Sender: FDA-Public Use
  Company Number: None

PATIENT
  Age: 47 Year
  Sex: Female
  Weight: 72.7 kg

DRUGS (2)
  1. PROPARACAINE HYDROCHLORIDE [Suspect]
     Indication: HYPOAESTHESIA EYE
     Dosage: OU 1 GTT   EYE DROP
     Dates: start: 20130222
  2. PAREMYD [Suspect]
     Dosage: OU 1 GTT 2 TIMES EYE DROP

REACTIONS (1)
  - Keratitis [None]
